FAERS Safety Report 7296866-0 (Version None)
Quarter: 2011Q1

REPORT INFORMATION
  Report Type: 
  Country: None (occurrence: None)
  Receive Date: 20110204
  Receipt Date: 20110202
  Transmission Date: 20110831
  Serious: Yes (Hospitalization)
  Sender: FDA-Public Use
  Company Number: GRT 2011-10061

PATIENT
  Age: 79 Year
  Sex: Male

DRUGS (1)
  1. LIDODERM [Suspect]
     Indication: POST HERPETIC NEURALGIA
     Dosage: 1 PATCH A DAY
     Dates: start: 20100209, end: 20100226

REACTIONS (4)
  - DRUG INEFFECTIVE [None]
  - SKIN LESION [None]
  - DERMATITIS EXFOLIATIVE [None]
  - OEDEMA [None]
